FAERS Safety Report 7528881-3 (Version None)
Quarter: 2011Q2

REPORT INFORMATION
  Report Type: 
  Country: None (occurrence: None)
  Receive Date: 20110607
  Receipt Date: 20101104
  Transmission Date: 20111010
  Serious: No
  Sender: FDA-Public Use
  Company Number: US-ASTRAZENECA-2010SE53383

PATIENT
  Age: 79 Year
  Sex: Female

DRUGS (5)
  1. PRILOSEC OTC [Suspect]
     Indication: REGURGITATION
     Route: 048
     Dates: start: 20101010
  2. SYNTHROID [Concomitant]
  3. TRIMBPHO [Concomitant]
  4. CRESTOR [Concomitant]
  5. ANTIBIOTIC [Concomitant]

REACTIONS (3)
  - URINARY TRACT INFECTION [None]
  - INAPPROPRIATE SCHEDULE OF DRUG ADMINISTRATION [None]
  - INCORRECT DRUG ADMINISTRATION DURATION [None]
